FAERS Safety Report 20865514 (Version 1)
Quarter: 2022Q2

REPORT INFORMATION
  Report Type: Spontaneous
  Country: JP (occurrence: JP)
  Receive Date: 20220524
  Receipt Date: 20220524
  Transmission Date: 20220721
  Serious: Yes (Death, Other)
  Sender: FDA-Public Use
  Company Number: AER-2022-005977

PATIENT
  Age: 78 Year
  Sex: Female
  Weight: 47 kg

DRUGS (20)
  1. MICAFUNGIN [Suspect]
     Active Substance: MICAFUNGIN
     Indication: Cellulitis
     Dosage: UNK UNK, UNKNOWN FREQ.
     Route: 065
  2. AZACITIDINE [Concomitant]
     Active Substance: AZACITIDINE
     Indication: Myelodysplastic syndrome
     Dosage: UNK UNK, UNKNOWN FREQ.
     Route: 065
     Dates: start: 201712, end: 20200319
  3. LEVOFLOXACIN HEMIHYDRATE [Concomitant]
     Active Substance: LEVOFLOXACIN
     Indication: Abscess
     Dosage: UNK UNK, UNKNOWN FREQ.
     Route: 065
     Dates: start: 20200319
  4. LEVOFLOXACIN HEMIHYDRATE [Concomitant]
     Active Substance: LEVOFLOXACIN
     Indication: Pneumonia
     Dosage: UNK UNK, UNKNOWN FREQ.
     Route: 065
  5. LEVOFLOXACIN HEMIHYDRATE [Concomitant]
     Active Substance: LEVOFLOXACIN
     Indication: Stenotrophomonas infection
  6. AMOXICILLIN\CLAVULANATE POTASSIUM [Concomitant]
     Active Substance: AMOXICILLIN\CLAVULANATE POTASSIUM
     Indication: Abscess
     Dosage: UNK UNK, UNKNOWN FREQ.
     Route: 065
     Dates: start: 20200320
  7. AMOXICILLIN\CLAVULANATE POTASSIUM [Concomitant]
     Active Substance: AMOXICILLIN\CLAVULANATE POTASSIUM
     Indication: Pneumonia
  8. AMPICILLIN SODIUM\SULBACTAM SODIUM [Concomitant]
     Active Substance: AMPICILLIN SODIUM\SULBACTAM SODIUM
     Indication: Abscess
     Dosage: UNK UNK, UNKNOWN FREQ.
     Route: 065
     Dates: start: 20200324
  9. AMPICILLIN SODIUM\SULBACTAM SODIUM [Concomitant]
     Active Substance: AMPICILLIN SODIUM\SULBACTAM SODIUM
     Indication: Pneumonia
  10. VANCOMYCIN [Concomitant]
     Active Substance: VANCOMYCIN
     Indication: Abscess
     Dosage: UNK UNK, UNKNOWN FREQ.
     Route: 065
     Dates: start: 20200324
  11. VANCOMYCIN [Concomitant]
     Active Substance: VANCOMYCIN
     Indication: Pneumonia
  12. ACLARUBICIN HYDROCHLORIDE [Concomitant]
     Active Substance: ACLARUBICIN HYDROCHLORIDE
     Indication: Leukaemia
     Dosage: UNK UNK, UNKNOWN FREQ.
     Route: 065
     Dates: start: 20200407, end: 20200415
  13. CYTARABINE [Concomitant]
     Active Substance: CYTARABINE
     Indication: Leukaemia
     Dosage: UNK UNK, UNKNOWN FREQ.
     Route: 065
     Dates: start: 20200407, end: 20200415
  14. METHYLPREDNISOLONE [Concomitant]
     Active Substance: METHYLPREDNISOLONE
     Indication: Product used for unknown indication
     Dosage: 1GX1, UNKNOWN FREQ.
     Route: 065
     Dates: start: 20200417, end: 20200419
  15. MEROPENEM [Concomitant]
     Active Substance: MEROPENEM
     Indication: Cellulitis
     Dosage: UNK UNK, UNKNOWN FREQ.
     Route: 065
  16. CLINDAMYCIN [Concomitant]
     Active Substance: CLINDAMYCIN
     Indication: Cellulitis
     Dosage: UNK UNK, UNKNOWN FREQ.
     Route: 065
  17. LINEZOLID [Concomitant]
     Active Substance: LINEZOLID
     Indication: Product used for unknown indication
     Dosage: UNK UNK, UNKNOWN FREQ.
     Route: 065
  18. CASPOFUNGIN ACETATE [Concomitant]
     Active Substance: CASPOFUNGIN ACETATE
     Indication: Product used for unknown indication
     Dosage: UNK UNK, UNKNOWN FREQ.
     Route: 065
  19. GABEXATE MESYLATE [Concomitant]
     Active Substance: GABEXATE MESYLATE
     Indication: Disseminated intravascular coagulation
     Dosage: UNK UNK, UNKNOWN FREQ.
     Route: 065
  20. MINOCYCLINE HYDROCHLORIDE [Concomitant]
     Active Substance: MINOCYCLINE HYDROCHLORIDE
     Indication: Stenotrophomonas infection
     Dosage: UNK UNK, UNKNOWN FREQ.
     Route: 065

REACTIONS (5)
  - Death [Fatal]
  - Cellulitis [Unknown]
  - Respiratory disorder [Unknown]
  - General physical health deterioration [Unknown]
  - Fluid retention [Unknown]

NARRATIVE: CASE EVENT DATE: 20200430
